FAERS Safety Report 7448708-8 (Version None)
Quarter: 2011Q2

REPORT INFORMATION
  Report Type: 
  Country: None (occurrence: None)
  Receive Date: 20110429
  Receipt Date: 20100715
  Transmission Date: 20111010
  Serious: No
  Sender: FDA-Public Use
  Company Number: US-ASTRAZENECA-2010SE33083

PATIENT
  Sex: Female

DRUGS (2)
  1. FISH OIL [Concomitant]
  2. NEXIUM [Suspect]
     Route: 048
     Dates: start: 20100701

REACTIONS (2)
  - DRUG DOSE OMISSION [None]
  - ERUCTATION [None]
